FAERS Safety Report 9041619 (Version 1)
Quarter: 2013Q1

REPORT INFORMATION
  Report Type: Report from Study
  Country: US (occurrence: US)
  Receive Date: 20130129
  Receipt Date: 20130129
  Transmission Date: 20140127
  Serious: No
  Sender: FDA-Public Use
  Company Number: US-ABBOTT-12P-163-0900073-00

PATIENT
  Age: 44 Year
  Sex: Female

DRUGS (4)
  1. HUMIRA 40 MG/0.8 ML PEN [Suspect]
     Indication: RHEUMATOID ARTHRITIS
     Dosage: OCCASIONALLY TOOK EVERY 3 WEEKS.
     Dates: start: 201104
  2. HUMIRA 40 MG/0.8 ML PEN [Suspect]
     Dates: start: 201104
  3. PLACQUENIL [Concomitant]
     Indication: RHEUMATOID ARTHRITIS
  4. IBUPROFEN [Concomitant]
     Indication: RHEUMATOID ARTHRITIS

REACTIONS (2)
  - Laceration [Recovering/Resolving]
  - Hypoaesthesia [Recovering/Resolving]
